FAERS Safety Report 9657376 (Version 3)
Quarter: 2013Q4

REPORT INFORMATION
  Report Type: Report from Study
  Country: US (occurrence: US)
  Receive Date: 20131030
  Receipt Date: 20131226
  Transmission Date: 20140711
  Serious: Yes (Hospitalization)
  Sender: FDA-Public Use
  Company Number: US-DENDREON CORPORATION-2013PROUSA03187

PATIENT
  Age: 70 Year
  Sex: Male
  Weight: 82 kg

DRUGS (18)
  1. SIPULEUCEL-T [Suspect]
     Indication: PROSTATE CANCER METASTATIC
     Dosage: 250 ML, SINGLE
     Route: 042
     Dates: start: 20130829, end: 20130829
  2. SIPULEUCEL-T [Suspect]
     Dosage: 250 ML, SINGLE
     Route: 042
     Dates: start: 20130912, end: 20130912
  3. ZYTIGA [Concomitant]
     Indication: PROSTATE CANCER
     Dosage: UNK
     Route: 048
     Dates: start: 20130407
  4. LANTUS [Concomitant]
     Indication: DIABETES MELLITUS
     Dosage: 25 UNITS, HS
  5. LANTUS [Concomitant]
     Dosage: 30 UNITS, UNK
  6. HYDROCORTISONE [Concomitant]
  7. NIFEDIPINE [Concomitant]
     Indication: ESSENTIAL HYPERTENSION
     Dosage: 10 MG, TID
  8. ATENOLOL [Concomitant]
     Indication: ESSENTIAL HYPERTENSION
     Dosage: 100 MG, UNK
  9. PREDNISONE [Concomitant]
     Indication: PROSTATE CANCER
     Dosage: UNK
     Dates: start: 20130407
  10. HUMALOG [Concomitant]
     Indication: TYPE 2 DIABETES MELLITUS
     Dosage: 50 UNITS, UNK
  11. MEGACE ES [Concomitant]
     Indication: DECREASED APPETITE
     Dosage: 20 ML, UNK
  12. NORCO [Concomitant]
     Indication: ARTHRALGIA
     Dosage: 5/325 MG
  13. SIMVASTATIN [Concomitant]
     Indication: HYPERCHOLESTEROLAEMIA
     Dosage: 20 MG, UNK
  14. XGEVA [Concomitant]
     Indication: METASTASES TO BONE
     Dosage: 120 MG, UNK
  15. ASPIRIN [Concomitant]
     Indication: CORONARY ARTERY DISEASE
     Dosage: 81 MG, UNK
  16. ELIGARD [Concomitant]
     Indication: PROSTATE CANCER
     Dosage: UNK
     Dates: start: 20101025
  17. CALCIUM +D [Concomitant]
     Indication: PRODUCT USED FOR UNKNOWN INDICATION
  18. MULTIVITAMIN [Concomitant]
     Indication: PRODUCT USED FOR UNKNOWN INDICATION

REACTIONS (1)
  - Device related sepsis [Recovered/Resolved]
